FAERS Safety Report 9490508 (Version 1)
Quarter: 2013Q3

REPORT INFORMATION
  Report Type: Spontaneous
  Country: US (occurrence: None)
  Receive Date: 20130827
  Receipt Date: 20130827
  Transmission Date: 20140515
  Serious: No
  Sender: FDA-Public Use
  Company Number: None

PATIENT
  Age: 63 None
  Sex: 0
  Weight: 74.84 kg

DRUGS (21)
  1. FASLODEX [Suspect]
     Indication: CHEMOTHERAPY
     Dosage: 250 MG 5?-ML, 500 MG I.M EVERY 3 WEKS I.M 250 IN EACH HIP
     Route: 030
     Dates: start: 201207
  2. FASLODEX [Suspect]
     Indication: BREAST CANCER
     Dosage: 250 MG 5?-ML, 500 MG I.M EVERY 3 WEKS I.M 250 IN EACH HIP
     Route: 030
     Dates: start: 201207
  3. FASLODEX [Suspect]
     Indication: METASTASES TO BONE
     Dosage: 250 MG 5?-ML, 500 MG I.M EVERY 3 WEKS I.M 250 IN EACH HIP
     Route: 030
     Dates: start: 201207
  4. TAXOTERE [Concomitant]
  5. HERCEPTIN [Concomitant]
  6. FASLODEX [Concomitant]
  7. DECADRON [Concomitant]
  8. ZOFRAN [Concomitant]
  9. FOLIC ACID [Concomitant]
  10. ORAMORPH [Concomitant]
  11. MOBIC [Concomitant]
  12. ALDACTONE [Concomitant]
  13. ZOVIRAX [Concomitant]
  14. VITAMIN D [Concomitant]
  15. KCI [Concomitant]
  16. PRILOSEC [Concomitant]
  17. CENTRUM [Concomitant]
  18. FESO4 [Concomitant]
  19. MAG OX [Concomitant]
  20. OS CAL [Concomitant]
  21. OCUVITE [Concomitant]

REACTIONS (7)
  - Blood pressure increased [None]
  - Hypoaesthesia [None]
  - Tongue disorder [None]
  - Arthropathy [None]
  - Sensation of pressure [None]
  - Dysgeusia [None]
  - Dizziness [None]
